FAERS Safety Report 9779659 (Version 1)
Quarter: 2013Q4

REPORT INFORMATION
  Report Type: Spontaneous
  Country: US (occurrence: US)
  Receive Date: 20131223
  Receipt Date: 20131223
  Transmission Date: 20140711
  Serious: No
  Sender: FDA-Public Use
  Company Number: US-PFIZER INC-2013361373

PATIENT
  Age: 83 Year
  Sex: Male

DRUGS (15)
  1. PRISTIQ [Suspect]
     Dosage: 50 MG, 1X/DAY
     Route: 048
  2. CARDURA [Concomitant]
     Dosage: ONE TABLET BY MOUTH AT BEDTIME
     Route: 048
  3. KETOCONAZOLE [Concomitant]
     Dosage: 1 APPLICATION TO AFFECTED AREA BID
  4. QUINAPRIL HYDROCHLORIDE [Concomitant]
     Dosage: 20/12.5 MG TABLET 1 ONCE DAILY
  5. GLUCOPHAGE XR [Concomitant]
     Dosage: 500 MG TABLET EXTENDED RELEASE 24 HOUR 1 TWICE DAILY
  6. AMLODIPINE BESYLATE [Concomitant]
     Dosage: 2.5 MG, 1X/DAY
  7. FLUTICASONE PROPIONATE [Concomitant]
     Dosage: USE TWO SPRAY EACH NOSTRIL EVERY DAY
     Route: 045
  8. PROAIR HFA [Concomitant]
     Dosage: 2 PUFFS AS NEEDED EVERY 4 HRS
  9. NIACIN [Concomitant]
     Dosage: 250 MG, 1X/DAY
  10. DOXAZOSIN MESILATE [Concomitant]
     Dosage: 8 MG, 1X/DAY
  11. ADVAIR DISKUS [Concomitant]
     Dosage: 250 MCG - 50 MCG, 2X/ DAY
  12. NITROGLYCERIN [Concomitant]
     Dosage: UNK
  13. ASPIRIN [Concomitant]
     Dosage: 81 MG, 1X/DAY
  14. ISOSORBIDE DINITRATE [Concomitant]
     Dosage: 30 MG, QD
  15. METOPROLOL TARTRATE [Concomitant]
     Dosage: 50 MG, 1X/DAY

REACTIONS (4)
  - Breath odour [Unknown]
  - Paraesthesia [Unknown]
  - Diastasis recti abdominis [Unknown]
  - Influenza [Unknown]
